FAERS Safety Report 5456826-9 (Version None)
Quarter: 2007Q3

REPORT INFORMATION
  Report Type: 
  Country: None (occurrence: None)
  Receive Date: 20070918
  Receipt Date: 20070228
  Transmission Date: 20080115
  Serious: Yes (Other)
  Sender: FDA-Public Use
  Company Number: US-ASTRAZENECA-2006UW26252

PATIENT
  Sex: Male
  Weight: 144 kg

DRUGS (7)
  1. SEROQUEL [Suspect]
     Indication: DEPRESSION
     Dosage: 100 AND 200 MG USED
     Route: 048
     Dates: start: 19970101
  2. SEROQUEL [Suspect]
     Indication: SLEEP DISORDER
     Dosage: 100 AND 200 MG USED
     Route: 048
     Dates: start: 19970101
  3. ABILIFY [Concomitant]
     Dosage: 10 MG AND 15 MG
  4. CLOZARIL [Concomitant]
  5. HALDOL [Concomitant]
     Dosage: 10 MG
  6. RISPERDAL [Concomitant]
     Dosage: 2 MG
  7. ZYPREXA [Concomitant]
     Dosage: 25 MG

REACTIONS (3)
  - DIABETES MELLITUS [None]
  - DIABETIC KETOACIDOSIS [None]
  - TARDIVE DYSKINESIA [None]
